FAERS Safety Report 15463814 (Version 1)
Quarter: 2018Q4

REPORT INFORMATION
  Report Type: Spontaneous
  Country: US (occurrence: US)
  Receive Date: 20181004
  Receipt Date: 20181004
  Transmission Date: 20190204
  Serious: Yes (Hospitalization)
  Sender: FDA-Public Use
  Company Number: US-TARO PHARMACEUTICALS USA.,INC-2018SUN00501

PATIENT
  Age: 91 Year
  Sex: Male

DRUGS (1)
  1. WARFARIN [Suspect]
     Active Substance: WARFARIN
     Indication: ATRIAL FIBRILLATION
     Dosage: UNK
     Route: 065

REACTIONS (4)
  - Neurological decompensation [Recovering/Resolving]
  - Muscle haemorrhage [Recovering/Resolving]
  - Nerve compression [Recovering/Resolving]
  - Anticoagulation drug level above therapeutic [Recovering/Resolving]
